FAERS Safety Report 25485341 (Version 2)
Quarter: 2025Q4

REPORT INFORMATION
  Report Type: Report from Study
  Country: KR (occurrence: KR)
  Receive Date: 20250626
  Receipt Date: 20251127
  Transmission Date: 20260118
  Serious: Yes (Death)
  Sender: ABBVIE
  Company Number: KR-PFIZER INC-PV202500074370

PATIENT
  Age: 60 Year
  Sex: Male
  Weight: 67.2 kg

DRUGS (19)
  1. AVIBACTAM SODIUM\CEFTAZIDIME [Suspect]
     Active Substance: AVIBACTAM SODIUM\CEFTAZIDIME
     Indication: Pneumonia
     Dosage: 3 VIAL, 3X/DAY, INJECTION
     Route: 042
     Dates: start: 20250612
  2. AVIBACTAM SODIUM\CEFTAZIDIME [Suspect]
     Active Substance: AVIBACTAM SODIUM\CEFTAZIDIME
     Indication: Pneumonia
     Dosage: TIME INTERVAL: 0.33333333 DAYS: 3 VIAL, 3X/DAY, INJECTION
     Route: 042
     Dates: start: 20250612
  3. MOSAPRIDE CITRATE [Concomitant]
     Active Substance: MOSAPRIDE CITRATE
     Indication: Prophylaxis
     Dosage: 5 MG
     Route: 048
     Dates: start: 20250609, end: 20250613
  4. VANCOMYCIN [Concomitant]
     Active Substance: VANCOMYCIN
     Indication: Infection
     Dosage: 1 G
     Route: 042
     Dates: start: 20250607, end: 20250612
  5. BACTRIM [Concomitant]
     Active Substance: SULFAMETHOXAZOLE\TRIMETHOPRIM
     Indication: Infection
     Dosage: UNK
     Route: 042
     Dates: start: 20250515, end: 20250606
  6. Predipine [Concomitant]
     Indication: Prophylaxis
     Dosage: 100 MG
     Route: 042
     Dates: start: 20250519, end: 20250615
  7. MEROPENEM [Concomitant]
     Active Substance: MEROPENEM
     Indication: Infection
     Dosage: 1 G
     Route: 042
     Dates: start: 20250607, end: 20250612
  8. Vecaron [Concomitant]
     Indication: Sedation
     Dosage: 10 MG
     Route: 042
     Dates: start: 20250525
  9. HUMALOG [Concomitant]
     Active Substance: INSULIN LISPRO
     Indication: Diabetes mellitus
     Dosage: 100 I.U/ML
     Route: 042
     Dates: start: 20250515
  10. NEXIUM [Concomitant]
     Active Substance: ESOMEPRAZOLE MAGNESIUM
     Indication: Prophylaxis
     Dosage: UNK
     Route: 042
     Dates: start: 20250517
  11. Perasul [Concomitant]
     Indication: Infection
     Dosage: 2 G, KIT
     Route: 042
     Dates: start: 20250526, end: 20250607
  12. LEVOFLOXACIN [Concomitant]
     Active Substance: LEVOFLOXACIN
     Indication: Infection
     Dosage: 750 MG
     Route: 042
     Dates: start: 20250515, end: 20250606
  13. Teiconin [Concomitant]
     Indication: Infection
     Dosage: 400 MG
     Route: 042
     Dates: start: 20250612
  14. Remiva [Concomitant]
     Indication: Product used for unknown indication
     Dosage: 5 MG
     Route: 042
     Dates: start: 20250515
  15. Acetphen premix [Concomitant]
     Indication: Infection
     Dosage: UNK
     Route: 042
     Dates: start: 20250524, end: 20250616
  16. Solondo [Concomitant]
     Indication: Infection
     Dosage: 20 MG
     Route: 048
     Dates: start: 20250610, end: 20250613
  17. GASTER [Concomitant]
     Active Substance: FAMOTIDINE
     Indication: Prophylaxis
     Dosage: 20 MG
     Route: 042
     Dates: start: 20250613
  18. Q pam [Concomitant]
     Indication: Seizure prophylaxis
     Dosage: 500 MG
     Route: 042
     Dates: start: 20250526
  19. MIDAZOLAM [Concomitant]
     Active Substance: MIDAZOLAM
     Indication: Sedation
     Dosage: 15 MG
     Route: 042
     Dates: start: 20250515

REACTIONS (1)
  - Pneumonia [Fatal]

NARRATIVE: CASE EVENT DATE: 20250617
